FAERS Safety Report 10465727 (Version 1)
Quarter: 2014Q3

REPORT INFORMATION
  Report Type: Spontaneous
  Country: US (occurrence: US)
  Receive Date: 20140919
  Receipt Date: 20140919
  Transmission Date: 20150326
  Serious: Yes (Hospitalization, Other)
  Sender: FDA-Public Use
  Company Number: US-B.I. PHARMACEUTICALS,INC./RIDGEFIELD-2014-BI-43902BP

PATIENT
  Age: 85 Year
  Sex: Female

DRUGS (1)
  1. PRADAXA [Suspect]
     Active Substance: DABIGATRAN ETEXILATE MESYLATE
     Indication: ATRIAL FIBRILLATION
     Route: 065
     Dates: end: 20130916

REACTIONS (11)
  - Fall [Unknown]
  - Syncope [Recovered/Resolved]
  - Coagulopathy [Recovered/Resolved]
  - Pneumonia [Unknown]
  - Haematoma [Unknown]
  - Onychomycosis [Unknown]
  - Constipation [Recovered/Resolved]
  - Sepsis [Unknown]
  - Head injury [Unknown]
  - Anaemia [Unknown]
  - Intestinal obstruction [Recovered/Resolved]

NARRATIVE: CASE EVENT DATE: 201309
